FAERS Safety Report 7231300-8 (Version None)
Quarter: 2011Q1

REPORT INFORMATION
  Report Type: 
  Country: None (occurrence: None)
  Receive Date: 20110118
  Receipt Date: 20110111
  Transmission Date: 20110831
  Serious: Yes (Other)
  Sender: FDA-Public Use
  Company Number: US-PFIZER INC-2011007862

PATIENT
  Sex: Female

DRUGS (2)
  1. LYRICA [Suspect]
  2. ALCOHOL [Concomitant]

REACTIONS (2)
  - DRUG INTERACTION [None]
  - AGGRESSION [None]
